FAERS Safety Report 6687400-4 (Version None)
Quarter: 2010Q2

REPORT INFORMATION
  Report Type: 
  Country: None (occurrence: None)
  Receive Date: 20100419
  Receipt Date: 20100406
  Transmission Date: 20101027
  Serious: Yes (Death)
  Sender: FDA-Public Use
  Company Number: US-ELI_LILLY_AND_COMPANY-US201004001622

PATIENT
  Age: 42 Year
  Sex: Male

DRUGS (3)
  1. ZYPREXA [Suspect]
     Dosage: 1 D/F, UNK
  2. ZYPREXA [Suspect]
     Dosage: 200 MG, UNK
  3. VICODIN [Concomitant]

REACTIONS (3)
  - AGITATION [None]
  - COMPLETED SUICIDE [None]
  - INTENTIONAL OVERDOSE [None]
